FAERS Safety Report 13934300 (Version 2)
Quarter: 2017Q3

REPORT INFORMATION
  Report Type: Spontaneous
  Country: GB (occurrence: GB)
  Receive Date: 20170905
  Receipt Date: 20170905
  Transmission Date: 20171127
  Serious: Yes (Other)
  Sender: FDA-Public Use
  Company Number: GB-CIPLA LTD.-2017GB15522

PATIENT

DRUGS (2)
  1. ATENOLOLOL [Suspect]
     Active Substance: ATENOLOL
     Dosage: UNK, WHITE IN COLOUR
     Route: 065
  2. AMLODIPINE [Suspect]
     Active Substance: AMLODIPINE BESYLATE
     Dosage: UNK
     Route: 065

REACTIONS (4)
  - Malaise [Unknown]
  - Wrong drug administered [None]
  - Medication error [Unknown]
  - Myocardial infarction [Unknown]
